FAERS Safety Report 8609024-1 (Version None)
Quarter: 2012Q3

REPORT INFORMATION
  Report Type: 
  Country: None (occurrence: None)
  Receive Date: 20120821
  Receipt Date: 20120813
  Transmission Date: 20120928
  Serious: Yes (Other)
  Sender: FDA-Public Use
  Company Number: JP-GLAXOSMITHKLINE-B0823399A

PATIENT
  Age: 0 Year
  Sex: Male

DRUGS (4)
  1. VALTREX [Concomitant]
     Indication: HERPES SIMPLEX
     Dosage: 40MGK PER DAY
     Route: 048
  2. ZOVIRAX [Suspect]
     Indication: HERPES SIMPLEX
     Dosage: 10MGK THREE TIMES PER DAY
     Route: 042
  3. ZOVIRAX [Suspect]
     Dosage: 10MGK THREE TIMES PER DAY
     Route: 042
  4. ACYCLOVIR [Concomitant]
     Indication: HERPES SIMPLEX
     Dosage: 30MGK PER DAY
     Route: 048

REACTIONS (1)
  - NEUTROPENIA [None]
